FAERS Safety Report 25282389 (Version 1)
Quarter: 2025Q2

REPORT INFORMATION
  Report Type: Spontaneous
  Country: IN (occurrence: IN)
  Receive Date: 20250508
  Receipt Date: 20250508
  Transmission Date: 20250716
  Serious: Yes (Hospitalization)
  Sender: MYLAN
  Company Number: IN-MYLANLABS-2025M1038591

PATIENT
  Age: 49 Year
  Sex: Male

DRUGS (2)
  1. TRAMADOL [Interacting]
     Active Substance: TRAMADOL
     Indication: Analgesic therapy
     Dosage: 100 MILLIGRAM, QD
  2. RISPERIDONE [Interacting]
     Active Substance: RISPERIDONE
     Indication: Schizophrenia
     Dosage: 4 MILLIGRAM, QD

REACTIONS (2)
  - Dyskinesia [Recovered/Resolved]
  - Drug interaction [Recovered/Resolved]
